FAERS Safety Report 23616138 (Version 2)
Quarter: 2024Q3

REPORT INFORMATION
  Report Type: Spontaneous
  Country: DK (occurrence: DK)
  Receive Date: 20240311
  Receipt Date: 20240711
  Transmission Date: 20241017
  Serious: Yes (Disabling, Other)
  Sender: EMD SERONO INC
  Company Number: DK-Merck Healthcare KGaA-2024011750

PATIENT
  Age: 33 Year
  Sex: Female

DRUGS (1)
  1. MAVENCLAD [Suspect]
     Active Substance: CLADRIBINE
     Indication: Multiple sclerosis
     Dosage: FIRST YEAR THERAPY
     Dates: start: 201911

REACTIONS (4)
  - Bedridden [Unknown]
  - Neuromyelitis optica spectrum disorder [Unknown]
  - Muscle spasticity [Unknown]
  - Magnetic resonance imaging spinal abnormal [Unknown]
